FAERS Safety Report 12500220 (Version 1)
Quarter: 2016Q2

REPORT INFORMATION
  Report Type: Spontaneous
  Country: US (occurrence: None)
  Receive Date: 20160624
  Receipt Date: 20160624
  Transmission Date: 20160815
  Serious: No
  Sender: FDA-Public Use
  Company Number: None

PATIENT
  Age: 59 Year
  Sex: Female

DRUGS (9)
  1. LETROZOLE. [Suspect]
     Active Substance: LETROZOLE
     Indication: BREAST CANCER
     Route: 048
     Dates: start: 20160420
  2. OMEGA 3 [Concomitant]
     Active Substance: OMEGA-3 FATTY ACIDS
  3. L-ARGININE [Concomitant]
     Active Substance: ARGININE
  4. HAIR-SKIN-NAILS [Concomitant]
  5. MAXALT [Concomitant]
     Active Substance: RIZATRIPTAN BENZOATE
  6. IBRANCE [Suspect]
     Active Substance: PALBOCICLIB
     Indication: BREAST CANCER
     Route: 048
     Dates: start: 20160420
  7. MULTIVITAMIN [Concomitant]
     Active Substance: VITAMINS
  8. L-ORNITHINE [Concomitant]
  9. GR [Concomitant]

REACTIONS (6)
  - Migraine [None]
  - White blood cell count decreased [None]
  - Paraesthesia oral [None]
  - Fatigue [None]
  - Diarrhoea [None]
  - Nausea [None]

NARRATIVE: CASE EVENT DATE: 201605
